FAERS Safety Report 19464517 (Version 2)
Quarter: 2021Q2

REPORT INFORMATION
  Report Type: Spontaneous
  Country: CA (occurrence: CA)
  Receive Date: 20210626
  Receipt Date: 20210626
  Transmission Date: 20210717
  Serious: Yes (Other)
  Sender: FDA-Public Use
  Company Number: CA-ABBVIE-21K-028-3963832-00

PATIENT
  Age: 64 Year
  Sex: Female
  Weight: 73 kg

DRUGS (9)
  1. METHOTREXATE SODIUM. [Suspect]
     Active Substance: METHOTREXATE SODIUM
     Route: 065
     Dates: start: 20180227
  2. MELOXICAM. [Suspect]
     Active Substance: MELOXICAM
     Indication: PRODUCT USED FOR UNKNOWN INDICATION
     Route: 065
     Dates: start: 2018
  3. LEFLUNOMIDE. [Suspect]
     Active Substance: LEFLUNOMIDE
     Indication: RHEUMATOID ARTHRITIS
     Dosage: 10?20 MILLIGRAM
     Route: 065
     Dates: start: 2011
  4. METHOTREXATE SODIUM. [Suspect]
     Active Substance: METHOTREXATE SODIUM
     Indication: RHEUMATOID ARTHRITIS
     Route: 065
     Dates: start: 20111130, end: 201802
  5. RITUXAN [Suspect]
     Active Substance: RITUXIMAB
     Indication: BLOOD PRESSURE MEASUREMENT
     Route: 065
     Dates: end: 202011
  6. HUMIRA [Suspect]
     Active Substance: ADALIMUMAB
     Indication: PRODUCT USED FOR UNKNOWN INDICATION
     Route: 058
     Dates: start: 2019, end: 2020
  7. FOLIC ACID. [Concomitant]
     Active Substance: FOLIC ACID
     Indication: PRODUCT USED FOR UNKNOWN INDICATION
  8. METHOTREXATE SODIUM. [Suspect]
     Active Substance: METHOTREXATE SODIUM
     Route: 065
     Dates: start: 2018
  9. LEFLUNOMIDE. [Suspect]
     Active Substance: LEFLUNOMIDE
     Route: 065
     Dates: start: 2018

REACTIONS (7)
  - Pain in extremity [Unknown]
  - Drug ineffective [Unknown]
  - Arthralgia [Unknown]
  - Porphyria acute [Unknown]
  - Joint swelling [Unknown]
  - Arthralgia [Unknown]
  - Musculoskeletal stiffness [Unknown]

NARRATIVE: CASE EVENT DATE: 202101
